FAERS Safety Report 4869090-6 (Version None)
Quarter: 2005Q4

REPORT INFORMATION
  Report Type: 
  Country: None (occurrence: None)
  Receive Date: 20051227
  Receipt Date: 20051212
  Transmission Date: 20060501
  Serious: Yes (Life-Threatening)
  Sender: FDA-Public Use
  Company Number: OMPQ-NO-0512S-1492

PATIENT
  Age: 61 Year
  Sex: Male
  Weight: 67 kg

DRUGS (7)
  1. OMNIPAQUE 140 [Suspect]
     Indication: INTRACRANIAL ANEURYSM
     Dosage: 200 ML, SINGLE DOSE, I.A.
     Route: 014
     Dates: start: 20051126, end: 20051126
  2. HEPARIN SODIUM [Concomitant]
  3. NICARDIPINE HYDROCHLORIDE (PERDIPINE) [Concomitant]
  4. ATROPINE [Concomitant]
  5. VECURONIUM BROMIDE (MUSCULAX) [Concomitant]
  6. ETILEFRINE HYDROCHLORIDE (EFFORTIL) [Concomitant]
  7. ATROPINE SULFATE [Concomitant]

REACTIONS (3)
  - CHEST X-RAY ABNORMAL [None]
  - DYSPNOEA [None]
  - OXYGEN SATURATION DECREASED [None]
